APPROVED DRUG PRODUCT: IRBESARTAN
Active Ingredient: IRBESARTAN
Strength: 150MG
Dosage Form/Route: TABLET;ORAL
Application: A079213 | Product #002 | TE Code: AB
Applicant: ZYDUS PHARMACEUTICALS USA INC
Approved: Sep 27, 2012 | RLD: No | RS: No | Type: RX